FAERS Safety Report 8583758-X (Version None)
Quarter: 2012Q3

REPORT INFORMATION
  Report Type: 
  Country: None (occurrence: None)
  Receive Date: 20120810
  Receipt Date: 20120726
  Transmission Date: 20120928
  Serious: Yes (Death, Hospitalization)
  Sender: FDA-Public Use
  Company Number: US-009507513-1207USA006429

PATIENT

DRUGS (4)
  1. INTEGRILIN [Suspect]
     Indication: ELECTROCARDIOGRAM ST SEGMENT ELEVATION
     Dosage: UNK
     Route: 042
  2. INTEGRILIN [Suspect]
     Indication: MYOCARDIAL INFARCTION
  3. HEPARIN SODIUM [Suspect]
     Indication: MYOCARDIAL INFARCTION
  4. HEPARIN SODIUM [Suspect]
     Indication: ELECTROCARDIOGRAM ST SEGMENT ELEVATION
     Route: 042

REACTIONS (1)
  - HAEMOPTYSIS [None]
